FAERS Safety Report 12659778 (Version 7)
Quarter: 2017Q2

REPORT INFORMATION
  Report Type: Spontaneous
  Country: KR (occurrence: KR)
  Receive Date: 20160817
  Receipt Date: 20170405
  Transmission Date: 20170830
  Serious: No
  Sender: FDA-Public Use
  Company Number: KR-009507513-1608KOR006659

PATIENT
  Age: 77 Year
  Sex: Male

DRUGS (5)
  1. ATOZET [Suspect]
     Active Substance: ATORVASTATIN CALCIUM\EZETIMIBE
     Indication: PRIMARY HYPERCHOLESTEROLAEMIA
     Dosage: 1 TAB QD
     Route: 048
     Dates: start: 20160202
  2. ASPIRIN. [Concomitant]
     Active Substance: ASPIRIN
     Indication: CORONARY ARTERY OCCLUSION
     Dosage: 100 MG, DAILY
     Route: 048
     Dates: start: 20160124
  3. PLATLESS [Concomitant]
     Indication: CORONARY ARTERY OCCLUSION
     Dosage: 75 MG, DAILY
     Route: 048
     Dates: start: 20160123
  4. FLUDEX [Concomitant]
     Active Substance: INDAPAMIDE
     Indication: HYPERTENSION
     Dosage: 1.5 MG, DAILY
     Route: 048
     Dates: start: 20160202
  5. DILATREND [Concomitant]
     Active Substance: CARVEDILOL
     Indication: CORONARY ARTERY OCCLUSION
     Dosage: 6.25 MG, QD
     Route: 048
     Dates: start: 20160124

REACTIONS (2)
  - Prurigo [Recovering/Resolving]
  - Pruritus [Recovering/Resolving]

NARRATIVE: CASE EVENT DATE: 20160229
